FAERS Safety Report 5355699-2 (Version None)
Quarter: 2007Q2

REPORT INFORMATION
  Report Type: 
  Country: None (occurrence: None)
  Receive Date: 20070530
  Receipt Date: 20061009
  Transmission Date: 20071010
  Serious: Yes (Hospitalization)
  Sender: FDA-Public Use
  Company Number: US200610001884

PATIENT
  Sex: Female
  Weight: 72.6 kg

DRUGS (3)
  1. ZYPREXA [Suspect]
     Indication: BIPOLAR DISORDER
     Dosage: SEE IMAGE
     Dates: start: 20010101, end: 20020101
  2. ZYPREXA [Suspect]
     Indication: BIPOLAR DISORDER
     Dosage: SEE IMAGE
     Dates: start: 20030101, end: 20030808
  3. ZYPREXA [Suspect]
     Indication: BIPOLAR DISORDER
     Dosage: SEE IMAGE
     Dates: start: 20030808

REACTIONS (2)
  - DIABETES MELLITUS [None]
  - PANCREATITIS [None]
